FAERS Safety Report 17474604 (Version 1)
Quarter: 2020Q1

REPORT INFORMATION
  Report Type: Spontaneous
  Country: PL (occurrence: PL)
  Receive Date: 20200228
  Receipt Date: 20200228
  Transmission Date: 20200409
  Serious: Yes (Hospitalization, Other)
  Sender: FDA-Public Use
  Company Number: PL-ENDO PHARMACEUTICALS INC-2020-001771

PATIENT
  Age: 21 Year
  Sex: Male

DRUGS (3)
  1. ISOTRETINOIN. [Suspect]
     Active Substance: ISOTRETINOIN
     Indication: ACNE
     Dosage: 20 MG, DAILY
     Route: 048
  2. AVEED [Suspect]
     Active Substance: TESTOSTERONE UNDECANOATE
     Indication: MUSCLE MASS
     Dosage: 500 MG, WEEKLY
     Route: 030
  3. ISOTRETINOIN. [Suspect]
     Active Substance: ISOTRETINOIN
     Dosage: 60 MG, DAILY
     Route: 048

REACTIONS (2)
  - Acne fulminans [Recovered/Resolved with Sequelae]
  - Drug abuse [Unknown]
